FAERS Safety Report 5315045-7 (Version None)
Quarter: 2007Q2

REPORT INFORMATION
  Report Type: 
  Country: None (occurrence: None)
  Receive Date: 20070502
  Receipt Date: 20070426
  Transmission Date: 20071010
  Serious: Yes (Hospitalization)
  Sender: FDA-Public Use
  Company Number: CH-ELI_LILLY_AND_COMPANY-CH200704006030

PATIENT
  Age: 41 Year
  Sex: Female
  Weight: 60 kg

DRUGS (8)
  1. ZYPREXA [Suspect]
     Dosage: 30 MG, DAILY (1/D)
     Route: 048
     Dates: start: 20061125, end: 20061227
  2. ZYPREXA [Suspect]
     Dosage: 20 MG, DAILY (1/D)
     Route: 048
     Dates: start: 20061228, end: 20070110
  3. ZYPREXA [Suspect]
     Dosage: 15 MG, DAILY (1/D)
     Route: 048
     Dates: start: 20070111, end: 20070115
  4. ZYPREXA [Suspect]
     Dosage: 10 MG, DAILY (1/D)
     Route: 048
     Dates: start: 20070116, end: 20070118
  5. ZYPREXA [Suspect]
     Dosage: 5 MG, DAILY (1/D)
     Route: 048
     Dates: start: 20070119, end: 20070120
  6. SUBUTEX [Concomitant]
     Dosage: 1.6 MG, DAILY (1/D)
     Route: 048
     Dates: start: 20061128
  7. RISPERDAL [Concomitant]
     Dosage: 2 MG, DAILY (1/D)
     Route: 048
     Dates: start: 20061127, end: 20061205
  8. RISPERDAL [Concomitant]
     Dosage: 4 MG, DAILY (1/D)
     Route: 048
     Dates: start: 20061206

REACTIONS (2)
  - OEDEMA PERIPHERAL [None]
  - PERIORBITAL OEDEMA [None]
